FAERS Safety Report 7475039-2 (Version None)
Quarter: 2011Q2

REPORT INFORMATION
  Report Type: 
  Country: None (occurrence: None)
  Receive Date: 20110509
  Receipt Date: 20110509
  Transmission Date: 20111010
  Serious: No
  Sender: FDA-Public Use
  Company Number: None

PATIENT
  Age: 8 Year
  Sex: Male
  Weight: 30.8446 kg

DRUGS (1)
  1. AMOXICILLIN [Suspect]
     Indication: PHARYNGITIS STREPTOCOCCAL
     Dosage: I TEASPOON TWICE A DAY PO
     Route: 048
     Dates: start: 20101015, end: 20101026

REACTIONS (4)
  - ABDOMINAL PAIN UPPER [None]
  - TREATMENT FAILURE [None]
  - ABDOMINAL DISTENSION [None]
  - FAECALOMA [None]
